FAERS Safety Report 6590527-9 (Version None)
Quarter: 2010Q1

REPORT INFORMATION
  Report Type: 
  Country: None (occurrence: None)
  Receive Date: 20100219
  Receipt Date: 20100205
  Transmission Date: 20100710
  Serious: Yes (Hospitalization, Other)
  Sender: FDA-Public Use
  Company Number: NL-CELGENEUS-114-21880-10020480

PATIENT
  Sex: Male
  Weight: 70 kg

DRUGS (12)
  1. REVLIMID [Suspect]
     Route: 048
     Dates: start: 20100117, end: 20100126
  2. REVLIMID [Suspect]
     Indication: MYELOPROLIFERATIVE DISORDER
  3. PREDNISON [Concomitant]
     Route: 065
     Dates: start: 20100113
  4. PREDNISON [Concomitant]
     Indication: MYELOPROLIFERATIVE DISORDER
  5. ASCAL [Concomitant]
     Route: 065
  6. CARVEDILOL [Concomitant]
     Indication: HYPERTENSION
     Route: 065
  7. FUROSEMIDE [Concomitant]
     Indication: HYPERTENSION
     Route: 065
  8. GLICLAZIDE [Concomitant]
     Route: 065
  9. TAMSULOSIN [Concomitant]
     Indication: DRUG USE FOR UNKNOWN INDICATION
     Route: 065
  10. METFORMIN HCL [Concomitant]
     Indication: DRUG USE FOR UNKNOWN INDICATION
     Route: 065
  11. PANTOZOL [Concomitant]
     Indication: DRUG USE FOR UNKNOWN INDICATION
     Route: 065
  12. FRAXIPARINE [Concomitant]
     Indication: ANTICOAGULANT THERAPY
     Route: 065
     Dates: start: 20100113

REACTIONS (2)
  - HORNER'S SYNDROME [None]
  - ILEUS [None]
